FAERS Safety Report 19408230 (Version 4)
Quarter: 2022Q1

REPORT INFORMATION
  Report Type: Spontaneous
  Country: IN (occurrence: IN)
  Receive Date: 20210611
  Receipt Date: 20220307
  Transmission Date: 20220423
  Serious: Yes (Other)
  Sender: FDA-Public Use
  Company Number: IN-PFIZER INC-2021640847

PATIENT
  Age: 49 Year
  Sex: Male
  Weight: 95.3 kg

DRUGS (4)
  1. CRIZOTINIB [Suspect]
     Active Substance: CRIZOTINIB
     Indication: Non-small cell lung cancer
     Dosage: 250 MG, 1X/DAY
     Route: 048
     Dates: start: 20210318
  2. CRIZOTINIB [Suspect]
     Active Substance: CRIZOTINIB
     Dosage: 250 MG, 2X/DAY
     Route: 048
  3. ZOLEDRONIC ACID [Concomitant]
     Active Substance: ZOLEDRONIC ACID
     Dosage: 4 MG
  4. ZINCOVIT [ASCORBIC ACID;BIOTIN;CHROMIUM;COLECALCIFEROL;COPPER;FOLIC AC [Concomitant]
     Dosage: UNK, DAILY (1OD)

REACTIONS (7)
  - COVID-19 [Unknown]
  - Pustule [Unknown]
  - Blood magnesium increased [Unknown]
  - Haemoglobin decreased [Unknown]
  - Osteosclerosis [Unknown]
  - Pleural thickening [Unknown]
  - Blood pressure increased [Unknown]

NARRATIVE: CASE EVENT DATE: 20210716
